FAERS Safety Report 4711493-4 (Version None)
Quarter: 2005Q3

REPORT INFORMATION
  Report Type: 
  Country: None (occurrence: None)
  Receive Date: 20050711
  Receipt Date: 20050628
  Transmission Date: 20060218
  Serious: Yes (Hospitalization, Other)
  Sender: FDA-Public Use
  Company Number: 200512653BCC

PATIENT
  Age: 83 Year
  Sex: Female

DRUGS (5)
  1. ALEVE [Suspect]
     Indication: DEMENTIA ALZHEIMER'S TYPE
     Dosage: BID, ORAL
     Route: 048
     Dates: start: 20030730, end: 20030828
  2. ALEVE [Suspect]
     Indication: PROPHYLAXIS
     Dosage: BID, ORAL
     Route: 048
     Dates: start: 20030730, end: 20030828
  3. LEVOTHYROXINE [Concomitant]
  4. VITAMIN E [Concomitant]
  5. CALCIUM GLUCONATE [Concomitant]

REACTIONS (1)
  - DIVERTICULITIS [None]
